FAERS Safety Report 18015818 (Version 1)
Quarter: 2020Q3

REPORT INFORMATION
  Report Type: Spontaneous
  Country: JP (occurrence: JP)
  Receive Date: 20200713
  Receipt Date: 20200713
  Transmission Date: 20201103
  Serious: Yes (Other)
  Sender: FDA-Public Use
  Company Number: NVSC2020JP184679

PATIENT
  Age: 28 Year
  Sex: Female

DRUGS (1)
  1. PAZOPANIB [Suspect]
     Active Substance: PAZOPANIB
     Indication: EPITHELIOID SARCOMA RECURRENT
     Dosage: 800 MG, QD
     Route: 065

REACTIONS (3)
  - Soft tissue necrosis [Unknown]
  - Tumour necrosis [Unknown]
  - Skin wound [Unknown]
